FAERS Safety Report 14267204 (Version 9)
Quarter: 2018Q1

REPORT INFORMATION
  Report Type: Report from Study
  Country: CA (occurrence: CA)
  Receive Date: 20171211
  Receipt Date: 20180327
  Transmission Date: 20180508
  Serious: Yes (Other)
  Sender: FDA-Public Use
  Company Number: CA-AMGEN-CANSL2017181836

PATIENT
  Age: 47 Year
  Sex: Female
  Weight: 85 kg

DRUGS (5)
  1. KYPROLIS [Suspect]
     Active Substance: CARFILZOMIB
     Indication: PLASMA CELL MYELOMA
     Dosage: 118 MG, ON DAYS 1, 2, 8, 9, 15 AND 16
     Route: 042
     Dates: start: 20171127, end: 2017
  2. KYPROLIS [Suspect]
     Active Substance: CARFILZOMIB
     Dosage: 54 MG, 2 DAYS A WEEK X 3 WEEKS (OD X2 X3 WEEKS)
     Route: 042
     Dates: start: 20171229, end: 20180220
  3. KYPROLIS [Suspect]
     Active Substance: CARFILZOMIB
     Dosage: 54 MG, 2 X CONSECUTIVE DAYS EACH WEEK
     Route: 042
     Dates: start: 20171221, end: 201712
  4. KYPROLIS [Suspect]
     Active Substance: CARFILZOMIB
     Dosage: 118 MG, ON DAY 1, 2, 8, 9, 15 AND 16
     Route: 042
     Dates: start: 2017
  5. KYPROLIS [Suspect]
     Active Substance: CARFILZOMIB
     Dosage: 42 MG, ON DAYS 1, 2, 8, 9, 15 AND 16
     Route: 042
     Dates: start: 2017

REACTIONS (17)
  - Fatigue [Recovering/Resolving]
  - Anxiety [Recovering/Resolving]
  - Spinal cord neoplasm [Not Recovered/Not Resolved]
  - Depression [Recovering/Resolving]
  - Contusion [Not Recovered/Not Resolved]
  - Dyspnoea [Not Recovered/Not Resolved]
  - Pain [Not Recovered/Not Resolved]
  - Muscle spasms [Not Recovered/Not Resolved]
  - Productive cough [Recovered/Resolved]
  - Malaise [Not Recovered/Not Resolved]
  - Erythropoiesis abnormal [Not Recovered/Not Resolved]
  - Somnolence [Not Recovered/Not Resolved]
  - Appetite disorder [Recovering/Resolving]
  - Nausea [Recovering/Resolving]
  - Back pain [Not Recovered/Not Resolved]
  - Pyrexia [Recovered/Resolved]
  - Dry mouth [Recovering/Resolving]

NARRATIVE: CASE EVENT DATE: 2017
